FAERS Safety Report 19577487 (Version 4)
Quarter: 2022Q2

REPORT INFORMATION
  Report Type: Report from Study
  Country: US (occurrence: None)
  Receive Date: 20210719
  Receipt Date: 20220519
  Transmission Date: 20220721
  Serious: Yes (Hospitalization)
  Sender: FDA-Public Use
  Company Number: US-ROCHE-2870216

PATIENT
  Age: 80 Year
  Sex: Female
  Weight: 74.7 kg

DRUGS (15)
  1. OBINUTUZUMAB [Suspect]
     Active Substance: OBINUTUZUMAB
     Indication: Chronic lymphocytic leukaemia
     Dosage: ON C1D1,
     Route: 042
     Dates: start: 20210517
  2. OBINUTUZUMAB [Suspect]
     Active Substance: OBINUTUZUMAB
     Dosage: ON C1D2
     Route: 042
  3. OBINUTUZUMAB [Suspect]
     Active Substance: OBINUTUZUMAB
     Dosage: ON C1D8 + C1D15, C2-6D1, LAST ADMINISTERED DATE: 01/JUN/2021, TOTAL DOSE ADMINISTERED: 3000 MG
     Route: 042
  4. IBRUTINIB [Suspect]
     Active Substance: IBRUTINIB
     Indication: Chronic lymphocytic leukaemia
     Dosage: FOR 15 CYCLES,  LAST ADMINISTERED DATE: 01/NOV/2021, TOTAL DOSE ADMINISTERED: 6720 MG
     Route: 048
     Dates: start: 20210517
  5. IBRUTINIB [Suspect]
     Active Substance: IBRUTINIB
     Dosage: LAST ADMINISTERED DATE: 01/NOV/2021, TOTAL DOSE ADMINISTERED:1960 MG (DOSE DECREASED)
     Route: 048
     Dates: start: 20210517
  6. AMIODARONE [Concomitant]
     Active Substance: AMIODARONE
  7. AMLODIPINE [Concomitant]
     Active Substance: AMLODIPINE BESYLATE
  8. APIXABAN [Concomitant]
     Active Substance: APIXABAN
  9. ASPIRIN [Concomitant]
     Active Substance: ASPIRIN
  10. BISOPROLOL [Concomitant]
     Active Substance: BISOPROLOL
  11. EZETIMIBE [Concomitant]
     Active Substance: EZETIMIBE
  12. FUROSEMIDE [Concomitant]
     Active Substance: FUROSEMIDE
  13. LEVETIRACETAM [Concomitant]
     Active Substance: LEVETIRACETAM
  14. METFORMIN [Concomitant]
     Active Substance: METFORMIN HYDROCHLORIDE
  15. OLMESARTAN [Concomitant]
     Active Substance: OLMESARTAN

REACTIONS (8)
  - Cardiac failure [Recovered/Resolved]
  - Respiratory failure [Recovered/Resolved]
  - Acidosis [Recovered/Resolved]
  - Dyspnoea [Not Recovered/Not Resolved]
  - Pneumonia [Recovered/Resolved]
  - Dyspnoea [Recovering/Resolving]
  - Cardiac failure [Recovering/Resolving]
  - Urinary tract infection [Unknown]

NARRATIVE: CASE EVENT DATE: 20210603
